FAERS Safety Report 15510694 (Version 1)
Quarter: 2018Q4

REPORT INFORMATION
  Report Type: Spontaneous
  Country: US (occurrence: US)
  Receive Date: 20181010
  Receipt Date: 20181010
  Transmission Date: 20190205
  Serious: Yes (Hospitalization)
  Sender: FDA-Public Use
  Company Number: None

PATIENT
  Age: 5 Year
  Sex: Male
  Weight: 20.9 kg

DRUGS (5)
  1. CYTARABINE 70MG [Suspect]
     Active Substance: CYTARABINE
     Dates: end: 20170203
  2. METHOTREXATE 24MG [Concomitant]
  3. PEG-L ASPARAGINASE 1800 IU [Concomitant]
  4. VINCRISTINE 4.4MG [Concomitant]
  5. DEXAMETHASONE 125.62MG [Concomitant]
     Active Substance: DEXAMETHASONE

REACTIONS (2)
  - Acute lymphocytic leukaemia [None]
  - Condition aggravated [None]

NARRATIVE: CASE EVENT DATE: 20180926
